FAERS Safety Report 11565036 (Version 6)
Quarter: 2016Q1

REPORT INFORMATION
  Report Type: Spontaneous
  Country: JP (occurrence: JP)
  Receive Date: 20150928
  Receipt Date: 20160219
  Transmission Date: 20160525
  Serious: Yes (Other)
  Sender: FDA-Public Use
  Company Number: JP-GILEAD-2015-0172243

PATIENT
  Age: 66 Year
  Sex: Male
  Weight: 75.9 kg

DRUGS (4)
  1. SOVALDI [Suspect]
     Active Substance: SOFOSBUVIR
     Indication: CHRONIC HEPATITIS C
     Dosage: 400 MG, QD
     Route: 048
     Dates: start: 20150618, end: 20150912
  2. COPEGUS [Concomitant]
     Active Substance: RIBAVIRIN
     Dosage: 600 MG, QD
     Route: 048
     Dates: start: 20150716, end: 20150910
  3. COPEGUS [Concomitant]
     Active Substance: RIBAVIRIN
     Indication: CHRONIC HEPATITIS C
     Dosage: 800 MG, QD
     Route: 048
     Dates: start: 20150618, end: 20150715
  4. CALBLOCK [Concomitant]
     Active Substance: AZELNIDIPINE
     Indication: HYPERTENSION
     Dosage: 16 MG, UNK
     Route: 048
     Dates: start: 20120807

REACTIONS (15)
  - Paraesthesia [Recovering/Resolving]
  - Dizziness [Unknown]
  - Decreased appetite [Recovering/Resolving]
  - Insomnia [Recovering/Resolving]
  - Fall [Unknown]
  - Neck mass [Not Recovered/Not Resolved]
  - Memory impairment [Unknown]
  - Vasodilatation [Not Recovered/Not Resolved]
  - Headache [Recovering/Resolving]
  - Lymphadenopathy [Not Recovered/Not Resolved]
  - Drug ineffective [Not Recovered/Not Resolved]
  - Anaemia [Recovered/Resolved]
  - Dizziness [Recovering/Resolving]
  - Loss of consciousness [Unknown]
  - Hepatitis [Not Recovered/Not Resolved]

NARRATIVE: CASE EVENT DATE: 2015
